FAERS Safety Report 9263275 (Version 1)
Quarter: 2013Q2

REPORT INFORMATION
  Report Type: Spontaneous
  Country: GR (occurrence: GR)
  Receive Date: 20130430
  Receipt Date: 20130430
  Transmission Date: 20140414
  Serious: Yes (Death, Hospitalization, Other)
  Sender: FDA-Public Use
  Company Number: GR-PFIZER INC-2013126561

PATIENT
  Age: 73 Year
  Sex: Female

DRUGS (5)
  1. METHYLPREDNISOLONE [Suspect]
     Indication: AUTOIMMUNE HEPATITIS
     Dosage: UNK
  2. AZATHIOPRINE [Suspect]
     Indication: AUTOIMMUNE HEPATITIS
  3. CEFTRIAXONE SODIUM [Concomitant]
     Dosage: UNK
  4. MEROPENEM [Concomitant]
     Dosage: UNK
  5. VANCOMYCIN HYDROCHLORIDE [Concomitant]
     Dosage: UNK

REACTIONS (3)
  - Sepsis [Fatal]
  - Multi-organ failure [Fatal]
  - Superinfection [Unknown]
